FAERS Safety Report 10025228 (Version 1)
Quarter: 2014Q1

REPORT INFORMATION
  Report Type: Spontaneous
  Country: US (occurrence: None)
  Receive Date: 20140319
  Receipt Date: 20140319
  Transmission Date: 20141002
  Serious: Yes (Hospitalization)
  Sender: FDA-Public Use
  Company Number: None

PATIENT
  Age: 67 Year
  Sex: Male
  Weight: 79.09 kg

DRUGS (2)
  1. 5-FLUOROURACIL (5-FU) [Suspect]
  2. OXALIPLATIN (ELOXATIN) [Suspect]

REACTIONS (20)
  - Nausea [None]
  - Vomiting [None]
  - Abdominal pain [None]
  - Malnutrition [None]
  - Dizziness [None]
  - Diarrhoea [None]
  - Asthenia [None]
  - Abasia [None]
  - Loss of consciousness [None]
  - Blood pressure decreased [None]
  - Weight decreased [None]
  - Decreased appetite [None]
  - Fatigue [None]
  - Dizziness postural [None]
  - Dehydration [None]
  - Atelectasis [None]
  - Pancreatic atrophy [None]
  - Colitis [None]
  - Enteritis [None]
  - Ascites [None]
